FAERS Safety Report 9458522 (Version 6)
Quarter: 2013Q4

REPORT INFORMATION
  Report Type: Report from Study
  Country: US (occurrence: US)
  Receive Date: 20130814
  Receipt Date: 20131220
  Transmission Date: 20140711
  Serious: Yes (Life-Threatening, Hospitalization)
  Sender: FDA-Public Use
  Company Number: US-ROCHE-1260609

PATIENT
  Age: 56 Year
  Sex: Female
  Weight: 83 kg

DRUGS (11)
  1. RIBAVIRIN [Suspect]
     Indication: CHRONIC HEPATITIS C
     Route: 065
     Dates: start: 20130603, end: 20130806
  2. BI 201335 [Suspect]
     Indication: HEPATITIS C
     Route: 048
     Dates: start: 20130603, end: 20130806
  3. BI 207127 [Suspect]
     Indication: HEPATITIS C
     Route: 048
  4. CARVEDILOL [Concomitant]
     Indication: HYPERTENSION
     Route: 048
     Dates: start: 20110801
  5. CARVEDILOL [Concomitant]
     Route: 065
  6. AMLODIPINE [Concomitant]
     Indication: HYPERTENSION
     Route: 048
     Dates: start: 20110907
  7. LOSARTAN/HCTZ [Concomitant]
     Indication: HYPERTENSION
     Route: 048
     Dates: start: 20110806
  8. ZOFRAN [Concomitant]
     Indication: VOMITING
     Route: 065
     Dates: start: 20130729
  9. ASPIRIN [Concomitant]
     Route: 065
  10. NORVASC [Concomitant]
     Route: 065
  11. HYDROCHLOROTHIAZIDE [Concomitant]
     Route: 065

REACTIONS (1)
  - Renal failure acute [Recovered/Resolved]
